FAERS Safety Report 4787412-1 (Version None)
Quarter: 2005Q3

REPORT INFORMATION
  Report Type: 
  Country: None (occurrence: None)
  Receive Date: 20050926
  Receipt Date: 20050630
  Transmission Date: 20060218
  Serious: No
  Sender: FDA-Public Use
  Company Number: 215817

PATIENT
  Age: 86 Year
  Sex: Female

DRUGS (1)
  1. AVASTIN [Suspect]
     Indication: COLORECTAL CANCER METASTATIC
     Dates: start: 20050509

REACTIONS (1)
  - PROTEINURIA [None]
